FAERS Safety Report 4616457-7 (Version None)
Quarter: 2005Q1

REPORT INFORMATION
  Report Type: 
  Country: None (occurrence: None)
  Receive Date: 20050318
  Receipt Date: 20050314
  Transmission Date: 20050727
  Serious: Yes (Other)
  Sender: FDA-Public Use
  Company Number: 2005032702

PATIENT
  Age: 72 Year
  Sex: Male

DRUGS (4)
  1. MACUGEN [Suspect]
     Indication: MACULAR DEGENERATION
     Dosage: 0.3 MG (0.3 MG, 1 IN 6 WK), INTRAVITREOUS
     Route: 031
     Dates: start: 20050215, end: 20050215
  2. VERAPAMAIL (VERAPAMIL) [Concomitant]
  3. COMBIVENT (IPARATROPIUM BROMIDE, SALBUTAMOL SULFATE) [Concomitant]
  4. HYDROXYCARBAMIDE (HYDROXYCARBAMIDE) [Concomitant]

REACTIONS (5)
  - INTRAOCULAR PRESSURE DECREASED [None]
  - INTRAOCULAR PRESSURE INCREASED [None]
  - MEDICATION ERROR [None]
  - RETINAL DISORDER [None]
  - VISUAL ACUITY REDUCED [None]
